FAERS Safety Report 8534028-7 (Version None)
Quarter: 2012Q3

REPORT INFORMATION
  Report Type: 
  Country: None (occurrence: None)
  Receive Date: 20120724
  Receipt Date: 20120717
  Transmission Date: 20120928
  Serious: Yes (Hospitalization)
  Sender: FDA-Public Use
  Company Number: US-AMGEN-USASP2012044869

PATIENT
  Age: 32 Year
  Sex: Male

DRUGS (1)
  1. EPOGEN [Suspect]
     Indication: HAEMODIALYSIS
     Dosage: 9400 IU, 3 TIMES/WK
     Route: 042
     Dates: start: 20050401

REACTIONS (4)
  - DEVICE RELATED INFECTION [None]
  - BLOOD IRON DECREASED [None]
  - ARTERIOVENOUS FISTULA OPERATION [None]
  - HAEMOGLOBIN DECREASED [None]
